FAERS Safety Report 5522026-7 (Version None)
Quarter: 2007Q4

REPORT INFORMATION
  Report Type: 
  Country: None (occurrence: None)
  Receive Date: 20071115
  Receipt Date: 20071102
  Transmission Date: 20080405
  Serious: Yes (Hospitalization)
  Sender: FDA-Public Use
  Company Number: 239455K07USA

PATIENT
  Age: 52 Year
  Sex: Female
  Weight: 68.0396 kg

DRUGS (7)
  1. REBIF [Suspect]
     Indication: MULTIPLE SCLEROSIS
     Dosage: 44 MCG, 3 IN  1 WEEKS, SUBCUTANEOUS
     Route: 058
     Dates: start: 20020624
  2. GABAPENTIN [Concomitant]
  3. POTASSIUM (POTASSIUM /00031401/) [Concomitant]
  4. LASIX (FUROSEMIDE /00032601/) [Concomitant]
  5. NORTRIPTYLINE (NORTRIPTYLINE /00006501/) [Concomitant]
  6. OXYCODONE HCL [Concomitant]
  7. SERTRALINE [Concomitant]

REACTIONS (2)
  - BLOOD CHOLESTEROL INCREASED [None]
  - INJECTION SITE CELLULITIS [None]
